FAERS Safety Report 21081552 (Version 1)
Quarter: 2022Q3

REPORT INFORMATION
  Report Type: Spontaneous
  Country: FR (occurrence: FR)
  Receive Date: 20220714
  Receipt Date: 20220714
  Transmission Date: 20221026
  Serious: Yes (Other)
  Sender: FDA-Public Use
  Company Number: None

PATIENT

DRUGS (5)
  1. BUPRENORPHINE [Suspect]
     Active Substance: BUPRENORPHINE
     Indication: Product used for unknown indication
     Dosage: UNK
     Route: 042
     Dates: start: 2004, end: 2005
  2. ALCOHOL [Suspect]
     Active Substance: ALCOHOL
     Indication: Product used for unknown indication
     Dosage: UNK (UP TO 45 U/D)
     Route: 048
     Dates: start: 1997
  3. ALCOHOL [Suspect]
     Active Substance: ALCOHOL
     Dosage: UNK (CURRENTLY 10 TO 12U/D)
     Route: 048
  4. TOBACCO LEAF [Suspect]
     Active Substance: TOBACCO LEAF
     Indication: Product used for unknown indication
     Dosage: UNK
  5. KETAMINE [Suspect]
     Active Substance: KETAMINE
     Indication: Product used for unknown indication
     Dosage: UNK
     Route: 065

REACTIONS (4)
  - General physical health deterioration [Not Recovered/Not Resolved]
  - Off label use [Recovered/Resolved]
  - Drug abuse [Not Recovered/Not Resolved]
  - Drug dependence [Not Recovered/Not Resolved]

NARRATIVE: CASE EVENT DATE: 20010101
